APPROVED DRUG PRODUCT: CODRIX
Active Ingredient: ACETAMINOPHEN; CODEINE PHOSPHATE
Strength: 500MG;15MG
Dosage Form/Route: TABLET;ORAL
Application: A040447 | Product #001
Applicant: WATSON LABORATORIES INC FLORIDA
Approved: Feb 26, 2003 | RLD: No | RS: No | Type: DISCN